FAERS Safety Report 7057504-5 (Version None)
Quarter: 2010Q4

REPORT INFORMATION
  Report Type: 
  Country: None (occurrence: None)
  Receive Date: 20101022
  Receipt Date: 20101012
  Transmission Date: 20110411
  Serious: Yes (Hospitalization)
  Sender: FDA-Public Use
  Company Number: PHHY2010JP68348

PATIENT

DRUGS (2)
  1. NEORAL [Suspect]
     Indication: PSORIASIS
     Dosage: 4 DF
     Route: 048
     Dates: start: 20100929
  2. NEORAL [Suspect]
     Dosage: 2 DF
     Route: 048
     Dates: start: 20101001

REACTIONS (2)
  - BACK PAIN [None]
  - FALL [None]
